FAERS Safety Report 9006789 (Version 1)
Quarter: 2013Q1

REPORT INFORMATION
  Report Type: Spontaneous
  Country: US (occurrence: US)
  Receive Date: 20130110
  Receipt Date: 20130110
  Transmission Date: 20140127
  Serious: Yes (Hospitalization)
  Sender: FDA-Public Use
  Company Number: PHEH2012US023736

PATIENT
  Age: 65 Year
  Sex: Female
  Weight: 62.4 kg

DRUGS (1)
  1. GILENYA [Suspect]
     Indication: MULTIPLE SCLEROSIS
     Dosage: 0.5 MG, DAILY
     Route: 048
     Dates: start: 20120613, end: 20121215

REACTIONS (4)
  - Tremor [Recovering/Resolving]
  - Asthenia [Recovering/Resolving]
  - Confusional state [Unknown]
  - Memory impairment [Unknown]
